FAERS Safety Report 8554765-8 (Version None)
Quarter: 2012Q3

REPORT INFORMATION
  Report Type: 
  Country: None (occurrence: None)
  Receive Date: 20120725
  Receipt Date: 20120725
  Transmission Date: 20120928
  Serious: No
  Sender: FDA-Public Use
  Company Number: None

PATIENT
  Sex: Female
  Weight: 90.3 kg

DRUGS (2)
  1. DEXAMETHASONE [Concomitant]
  2. PEG-L-ASPARAGINASE (K-H) [Suspect]
     Dosage: 5025 IU IV
     Route: 042

REACTIONS (3)
  - NECK PAIN [None]
  - INFLAMMATION [None]
  - BLOOD TRIGLYCERIDES INCREASED [None]
